FAERS Safety Report 4311685-2 (Version None)
Quarter: 2004Q1

REPORT INFORMATION
  Report Type: 
  Country: None (occurrence: None)
  Receive Date: 20040303
  Receipt Date: 20040303
  Transmission Date: 20041129
  Serious: Yes (Hospitalization)
  Sender: FDA-Public Use
  Company Number: None

PATIENT
  Age: 59 Year
  Sex: Male

DRUGS (1)
  1. PHENYTOIN [Suspect]
     Indication: CONVULSION
     Dosage: 50 MG TWICE DAIL ORAL
     Route: 048

REACTIONS (7)
  - ABASIA [None]
  - ATAXIA [None]
  - CONVULSION [None]
  - DRUG TOXICITY [None]
  - GAIT DISTURBANCE [None]
  - NERVOUS SYSTEM DISORDER [None]
  - NYSTAGMUS [None]
